FAERS Safety Report 8570966-7 (Version None)
Quarter: 2012Q3

REPORT INFORMATION
  Report Type: 
  Country: None (occurrence: None)
  Receive Date: 20120806
  Receipt Date: 20120802
  Transmission Date: 20120928
  Serious: No
  Sender: FDA-Public Use
  Company Number: US-BIOGENIDEC-2012BI020683

PATIENT
  Age: 49 Year
  Sex: Female

DRUGS (2)
  1. AVONEX [Suspect]
     Indication: MULTIPLE SCLEROSIS
     Route: 030
     Dates: start: 20110803
  2. AVONEX [Suspect]
     Route: 030
     Dates: start: 20120705

REACTIONS (6)
  - ABASIA [None]
  - MULTIPLE SCLEROSIS RELAPSE [None]
  - FLUSHING [None]
  - INFLUENZA LIKE ILLNESS [None]
  - UPPER LIMB FRACTURE [None]
  - GAIT DISTURBANCE [None]
